FAERS Safety Report 7206324-7 (Version None)
Quarter: 2011Q1

REPORT INFORMATION
  Report Type: 
  Country: None (occurrence: None)
  Receive Date: 20110103
  Receipt Date: 20101229
  Transmission Date: 20110831
  Serious: Yes (Life-Threatening, Other)
  Sender: FDA-Public Use
  Company Number: PHHY2010US31329

PATIENT
  Sex: Male

DRUGS (4)
  1. HYDROCODONE [Concomitant]
     Dosage: 10/325 (5 TIMES A DAY)
  2. LYRICA [Concomitant]
     Dosage: 100 MG, TID
  3. EXTAVIA [Suspect]
     Indication: MULTIPLE SCLEROSIS
     Dosage: 0.25 MG, QOD
     Route: 058
     Dates: start: 20100102
  4. ANALGESICS [Concomitant]
     Dosage: UNK

REACTIONS (17)
  - FEELING ABNORMAL [None]
  - SWEAT GLAND DISORDER [None]
  - WEIGHT DECREASED [None]
  - ARTHRALGIA [None]
  - PAIN IN EXTREMITY [None]
  - HYPERTHERMIA [None]
  - FATIGUE [None]
  - NECK PAIN [None]
  - BACK PAIN [None]
  - VITAL FUNCTIONS ABNORMAL [None]
  - DECREASED APPETITE [None]
  - HEART RATE DECREASED [None]
  - DEPRESSED LEVEL OF CONSCIOUSNESS [None]
  - NAUSEA [None]
  - RESPIRATORY RATE DECREASED [None]
  - ERYTHEMA [None]
  - MALAISE [None]
